FAERS Safety Report 5819983-8 (Version None)
Quarter: 2008Q3

REPORT INFORMATION
  Report Type: 
  Country: None (occurrence: None)
  Receive Date: 20080721
  Receipt Date: 20080715
  Transmission Date: 20090109
  Serious: Yes (Hospitalization)
  Sender: FDA-Public Use
  Company Number: 2008SP014365

PATIENT
  Age: 77 Year
  Sex: Male
  Weight: 93 kg

DRUGS (7)
  1. TEMODAR [Suspect]
     Dosage: 100 MG/M2; QD; PO, 200 MG/M2; QD; PO
     Route: 048
     Dates: start: 20080627, end: 20080710
  2. TEMODAR [Suspect]
     Dosage: 100 MG/M2; QD; PO, 200 MG/M2; QD; PO
     Route: 048
     Dates: start: 20080711
  3. COREG (CON.) [Concomitant]
  4. OMEPRAZOL (CON.) [Concomitant]
  5. AVODART (CON.) [Concomitant]
  6. VYTORIN (CON.) [Concomitant]
  7. ALLOPURINOL (CON.) [Concomitant]

REACTIONS (2)
  - FEBRILE NEUTROPENIA [None]
  - GENERAL PHYSICAL CONDITION ABNORMAL [None]
